FAERS Safety Report 20176000 (Version 1)
Quarter: 2021Q4

REPORT INFORMATION
  Report Type: Spontaneous
  Country: US (occurrence: US)
  Receive Date: 20211213
  Receipt Date: 20211213
  Transmission Date: 20220303
  Serious: No
  Sender: FDA-Public Use
  Company Number: US-MICRO LABS LIMITED-ML2021-03272

PATIENT
  Sex: Female

DRUGS (1)
  1. CROMOLYN SODIUM [Suspect]
     Active Substance: CROMOLYN SODIUM
     Dosage: STRENGTH: 100 MG/5 ML

REACTIONS (3)
  - Product administration error [Unknown]
  - Suspected product quality issue [Unknown]
  - Therapeutic product ineffective [Unknown]
